FAERS Safety Report 5925246-2 (Version None)
Quarter: 2008Q4

REPORT INFORMATION
  Report Type: 
  Country: None (occurrence: None)
  Receive Date: 20081020
  Receipt Date: 20081020
  Transmission Date: 20090506
  Serious: Yes (Hospitalization)
  Sender: FDA-Public Use
  Company Number: None

PATIENT
  Age: 63 Year
  Sex: Male

DRUGS (1)
  1. LIALDA [Suspect]
     Indication: COLITIS ULCERATIVE

REACTIONS (4)
  - CHILLS [None]
  - DRUG HYPERSENSITIVITY [None]
  - HYPOTENSION [None]
  - NAUSEA [None]
